FAERS Safety Report 15331721 (Version 2)
Quarter: 2018Q3

REPORT INFORMATION
  Report Type: Spontaneous
  Country: US (occurrence: US)
  Receive Date: 20180829
  Receipt Date: 20180905
  Transmission Date: 20181010
  Serious: Yes (Death, Other)
  Sender: FDA-Public Use
  Company Number: US-PFIZER INC-2018345838

PATIENT
  Age: 70 Year
  Sex: Male

DRUGS (3)
  1. NITROGLYCERIN. [Suspect]
     Active Substance: NITROGLYCERIN
     Indication: PROPHYLAXIS
     Dosage: 10 UG/KG, UNK  (INCREASED TO 10 UG/KG/MIN)
     Route: 042
  2. NITROGLYCERIN. [Suspect]
     Active Substance: NITROGLYCERIN
     Indication: ANGINA PECTORIS
  3. SODIUM NITROPRUSSIDE. [Suspect]
     Active Substance: SODIUM NITROPRUSSIDE
     Dosage: 5.4 UG/KG, UNK (4.5 UG/KG/MIN)

REACTIONS (4)
  - Hypoxia [Fatal]
  - Renal failure [Unknown]
  - Methaemoglobinaemia [Fatal]
  - Circulatory collapse [Fatal]
